FAERS Safety Report 6257946-1 (Version None)
Quarter: 2009Q3

REPORT INFORMATION
  Report Type: 
  Country: None (occurrence: None)
  Receive Date: 20090707
  Receipt Date: 20090626
  Transmission Date: 20100115
  Serious: Yes (Other)
  Sender: FDA-Public Use
  Company Number: TR-RANBAXY-2009RR-24414

PATIENT
  Age: 83 Year
  Sex: Male

DRUGS (7)
  1. GABAPENTIN [Suspect]
     Indication: NEURALGIA
     Dosage: 2400 MG, QD
  2. CARBIDOPA AND LEVODOPA [Concomitant]
     Dosage: UNK
  3. AMANTADINE HCL [Concomitant]
     Dosage: 300 MG, QD
  4. KETIAPIN [Concomitant]
     Dosage: 50 MG, QD
  5. SERTRALINE [Concomitant]
     Dosage: 50 MG, QD
  6. WARFARIN [Concomitant]
     Dosage: 2.5 MG, QD
  7. PROPAFENON HCL [Concomitant]
     Dosage: 150 MG, TID

REACTIONS (1)
  - BALLISMUS [None]
